FAERS Safety Report 26213116 (Version 1)
Quarter: 2025Q4

REPORT INFORMATION
  Report Type: Spontaneous
  Country: GB (occurrence: GB)
  Receive Date: 20251230
  Receipt Date: 20251230
  Transmission Date: 20260117
  Serious: Yes (Other)
  Sender: MYLAN
  Company Number: None

PATIENT
  Age: 84 Year
  Sex: Male
  Weight: 78 kg

DRUGS (64)
  1. AMLODIPINE [Suspect]
     Active Substance: AMLODIPINE BESYLATE
     Indication: Product used for unknown indication
     Dosage: 5 MILLIGRAM, QD (TAKE ONE DAILY)
     Dates: start: 20241127, end: 20251217
  2. AMLODIPINE [Suspect]
     Active Substance: AMLODIPINE BESYLATE
     Dosage: 5 MILLIGRAM, QD (TAKE ONE DAILY)
     Dates: start: 20241127, end: 20251217
  3. AMLODIPINE [Suspect]
     Active Substance: AMLODIPINE BESYLATE
     Dosage: 5 MILLIGRAM, QD (TAKE ONE DAILY)
     Route: 002
     Dates: start: 20241127, end: 20251217
  4. AMLODIPINE [Suspect]
     Active Substance: AMLODIPINE BESYLATE
     Dosage: 5 MILLIGRAM, QD (TAKE ONE DAILY)
     Route: 002
     Dates: start: 20241127, end: 20251217
  5. AMLODIPINE [Suspect]
     Active Substance: AMLODIPINE BESYLATE
     Dosage: 5 MILLIGRAM, QD (TAKE ONE DAILY)
     Dates: start: 20250220, end: 20251215
  6. AMLODIPINE [Suspect]
     Active Substance: AMLODIPINE BESYLATE
     Dosage: 5 MILLIGRAM, QD (TAKE ONE DAILY)
     Dates: start: 20250220, end: 20251215
  7. AMLODIPINE [Suspect]
     Active Substance: AMLODIPINE BESYLATE
     Dosage: 5 MILLIGRAM, QD (TAKE ONE DAILY)
     Route: 002
     Dates: start: 20250220, end: 20251215
  8. AMLODIPINE [Suspect]
     Active Substance: AMLODIPINE BESYLATE
     Dosage: 5 MILLIGRAM, QD (TAKE ONE DAILY)
     Route: 002
     Dates: start: 20250220, end: 20251215
  9. Aquacel extra [Concomitant]
     Dosage: UNK (USE AS DIRECTED)
     Dates: start: 20251124, end: 20251214
  10. Aquacel extra [Concomitant]
     Dosage: UNK (USE AS DIRECTED)
     Route: 065
     Dates: start: 20251124, end: 20251214
  11. Aquacel extra [Concomitant]
     Dosage: UNK (USE AS DIRECTED)
     Route: 065
     Dates: start: 20251124, end: 20251214
  12. Aquacel extra [Concomitant]
     Dosage: UNK (USE AS DIRECTED)
     Dates: start: 20251124, end: 20251214
  13. FLUCLOXACILLIN [Concomitant]
     Active Substance: FLUCLOXACILLIN
     Dosage: 1 DOSAGE FORM, QID (TAKE ONE 4 TIMES/DAY)
     Dates: start: 20251126, end: 20251203
  14. FLUCLOXACILLIN [Concomitant]
     Active Substance: FLUCLOXACILLIN
     Dosage: 1 DOSAGE FORM, QID (TAKE ONE 4 TIMES/DAY)
     Route: 065
     Dates: start: 20251126, end: 20251203
  15. FLUCLOXACILLIN [Concomitant]
     Active Substance: FLUCLOXACILLIN
     Dosage: 1 DOSAGE FORM, QID (TAKE ONE 4 TIMES/DAY)
     Route: 065
     Dates: start: 20251126, end: 20251203
  16. FLUCLOXACILLIN [Concomitant]
     Active Substance: FLUCLOXACILLIN
     Dosage: 1 DOSAGE FORM, QID (TAKE ONE 4 TIMES/DAY)
     Dates: start: 20251126, end: 20251203
  17. Octenilin [Concomitant]
     Dosage: UNK (USE AS DIRECTED)
  18. Octenilin [Concomitant]
     Dosage: UNK (USE AS DIRECTED)
     Route: 065
  19. Octenilin [Concomitant]
     Dosage: UNK (USE AS DIRECTED)
     Route: 065
  20. Octenilin [Concomitant]
     Dosage: UNK (USE AS DIRECTED)
  21. URGOCLEAN AG [Concomitant]
     Dosage: UNK (USE AS DIRECTED)
  22. URGOCLEAN AG [Concomitant]
     Dosage: UNK (USE AS DIRECTED)
     Route: 065
  23. URGOCLEAN AG [Concomitant]
     Dosage: UNK (USE AS DIRECTED)
     Route: 065
  24. URGOCLEAN AG [Concomitant]
     Dosage: UNK (USE AS DIRECTED)
  25. Nitromin [Concomitant]
     Dosage: UNK PRN (ONE PUFF AS NEEDED)
  26. Nitromin [Concomitant]
     Dosage: UNK PRN (ONE PUFF AS NEEDED)
     Route: 065
  27. Nitromin [Concomitant]
     Dosage: UNK PRN (ONE PUFF AS NEEDED)
     Route: 065
  28. Nitromin [Concomitant]
     Dosage: UNK PRN (ONE PUFF AS NEEDED)
  29. ASPIRIN [Concomitant]
     Active Substance: ASPIRIN
     Dosage: 1 DOSAGE FORM, QD (TAKE ONE DAILY)
     Dates: start: 20241127
  30. ASPIRIN [Concomitant]
     Active Substance: ASPIRIN
     Dosage: 1 DOSAGE FORM, QD (TAKE ONE DAILY)
     Route: 065
     Dates: start: 20241127
  31. ASPIRIN [Concomitant]
     Active Substance: ASPIRIN
     Dosage: 1 DOSAGE FORM, QD (TAKE ONE DAILY)
     Route: 065
     Dates: start: 20241127
  32. ASPIRIN [Concomitant]
     Active Substance: ASPIRIN
     Dosage: 1 DOSAGE FORM, QD (TAKE ONE DAILY)
     Dates: start: 20241127
  33. ATORVASTATIN [Concomitant]
     Active Substance: ATORVASTATIN
     Dosage: 1 DOSAGE FORM, QD (TAKE ONE DAILY)
     Dates: start: 20241127
  34. ATORVASTATIN [Concomitant]
     Active Substance: ATORVASTATIN
     Dosage: 1 DOSAGE FORM, QD (TAKE ONE DAILY)
     Route: 065
     Dates: start: 20241127
  35. ATORVASTATIN [Concomitant]
     Active Substance: ATORVASTATIN
     Dosage: 1 DOSAGE FORM, QD (TAKE ONE DAILY)
     Route: 065
     Dates: start: 20241127
  36. ATORVASTATIN [Concomitant]
     Active Substance: ATORVASTATIN
     Dosage: 1 DOSAGE FORM, QD (TAKE ONE DAILY)
     Dates: start: 20241127
  37. BISOPROLOL [Concomitant]
     Active Substance: BISOPROLOL
     Dosage: 1 DOSAGE FORM, QD (TAKE ONE DAILY)
     Dates: start: 20241127
  38. BISOPROLOL [Concomitant]
     Active Substance: BISOPROLOL
     Dosage: 1 DOSAGE FORM, QD (TAKE ONE DAILY)
     Route: 065
     Dates: start: 20241127
  39. BISOPROLOL [Concomitant]
     Active Substance: BISOPROLOL
     Dosage: 1 DOSAGE FORM, QD (TAKE ONE DAILY)
     Route: 065
     Dates: start: 20241127
  40. BISOPROLOL [Concomitant]
     Active Substance: BISOPROLOL
     Dosage: 1 DOSAGE FORM, QD (TAKE ONE DAILY)
     Dates: start: 20241127
  41. DOXAZOSIN [Concomitant]
     Active Substance: DOXAZOSIN MESYLATE
     Dosage: 1 DOSAGE FORM, QD (TAKE ONE DAILY)
     Dates: start: 20241127
  42. DOXAZOSIN [Concomitant]
     Active Substance: DOXAZOSIN MESYLATE
     Dosage: 1 DOSAGE FORM, QD (TAKE ONE DAILY)
     Route: 065
     Dates: start: 20241127
  43. DOXAZOSIN [Concomitant]
     Active Substance: DOXAZOSIN MESYLATE
     Dosage: 1 DOSAGE FORM, QD (TAKE ONE DAILY)
     Route: 065
     Dates: start: 20241127
  44. DOXAZOSIN [Concomitant]
     Active Substance: DOXAZOSIN MESYLATE
     Dosage: 1 DOSAGE FORM, QD (TAKE ONE DAILY)
     Dates: start: 20241127
  45. FOLIC ACID [Concomitant]
     Active Substance: FOLIC ACID
     Dosage: 1 DOSAGE FORM, QD (TAKE ONE DAILY EXCEPT FRIDAY)
     Dates: start: 20241127
  46. FOLIC ACID [Concomitant]
     Active Substance: FOLIC ACID
     Dosage: 1 DOSAGE FORM, QD (TAKE ONE DAILY EXCEPT FRIDAY)
     Route: 065
     Dates: start: 20241127
  47. FOLIC ACID [Concomitant]
     Active Substance: FOLIC ACID
     Dosage: 1 DOSAGE FORM, QD (TAKE ONE DAILY EXCEPT FRIDAY)
     Route: 065
     Dates: start: 20241127
  48. FOLIC ACID [Concomitant]
     Active Substance: FOLIC ACID
     Dosage: 1 DOSAGE FORM, QD (TAKE ONE DAILY EXCEPT FRIDAY)
     Dates: start: 20241127
  49. HYDROXYCHLOROQUINE SULFATE [Concomitant]
     Active Substance: HYDROXYCHLOROQUINE SULFATE
     Dosage: 1 DOSAGE FORM, BID (TAKE ONE TWICE DAILY)
     Dates: start: 20241127
  50. HYDROXYCHLOROQUINE SULFATE [Concomitant]
     Active Substance: HYDROXYCHLOROQUINE SULFATE
     Dosage: 1 DOSAGE FORM, BID (TAKE ONE TWICE DAILY)
     Route: 065
     Dates: start: 20241127
  51. HYDROXYCHLOROQUINE SULFATE [Concomitant]
     Active Substance: HYDROXYCHLOROQUINE SULFATE
     Dosage: 1 DOSAGE FORM, BID (TAKE ONE TWICE DAILY)
     Route: 065
     Dates: start: 20241127
  52. HYDROXYCHLOROQUINE SULFATE [Concomitant]
     Active Substance: HYDROXYCHLOROQUINE SULFATE
     Dosage: 1 DOSAGE FORM, BID (TAKE ONE TWICE DAILY)
     Dates: start: 20241127
  53. ISOSORBIDE MONONITRATE [Concomitant]
     Active Substance: ISOSORBIDE MONONITRATE
     Dosage: 0.5 DOSAGE FORM, AM (TAKE HALF EACH MORNING)
     Dates: start: 20241127
  54. ISOSORBIDE MONONITRATE [Concomitant]
     Active Substance: ISOSORBIDE MONONITRATE
     Dosage: 0.5 DOSAGE FORM, AM (TAKE HALF EACH MORNING)
     Route: 065
     Dates: start: 20241127
  55. ISOSORBIDE MONONITRATE [Concomitant]
     Active Substance: ISOSORBIDE MONONITRATE
     Dosage: 0.5 DOSAGE FORM, AM (TAKE HALF EACH MORNING)
     Route: 065
     Dates: start: 20241127
  56. ISOSORBIDE MONONITRATE [Concomitant]
     Active Substance: ISOSORBIDE MONONITRATE
     Dosage: 0.5 DOSAGE FORM, AM (TAKE HALF EACH MORNING)
     Dates: start: 20241127
  57. PERINDOPRIL ERBUMINE [Concomitant]
     Active Substance: PERINDOPRIL ERBUMINE
     Dosage: 1 DOSAGE FORM, QD (TAKE ONE ONCE DAILY)
     Dates: start: 20241127
  58. PERINDOPRIL ERBUMINE [Concomitant]
     Active Substance: PERINDOPRIL ERBUMINE
     Dosage: 1 DOSAGE FORM, QD (TAKE ONE ONCE DAILY)
     Route: 065
     Dates: start: 20241127
  59. PERINDOPRIL ERBUMINE [Concomitant]
     Active Substance: PERINDOPRIL ERBUMINE
     Dosage: 1 DOSAGE FORM, QD (TAKE ONE ONCE DAILY)
     Route: 065
     Dates: start: 20241127
  60. PERINDOPRIL ERBUMINE [Concomitant]
     Active Substance: PERINDOPRIL ERBUMINE
     Dosage: 1 DOSAGE FORM, QD (TAKE ONE ONCE DAILY)
     Dates: start: 20241127
  61. METHOTREXATE [Concomitant]
     Active Substance: METHOTREXATE
     Dosage: 25 MILLIGRAM, QW (25MG (TEN TABLETS) TO BE TAKEN ONCE WEEKLY ON A..)
     Dates: start: 20250908
  62. METHOTREXATE [Concomitant]
     Active Substance: METHOTREXATE
     Dosage: 25 MILLIGRAM, QW (25MG (TEN TABLETS) TO BE TAKEN ONCE WEEKLY ON A..)
     Route: 065
     Dates: start: 20250908
  63. METHOTREXATE [Concomitant]
     Active Substance: METHOTREXATE
     Dosage: 25 MILLIGRAM, QW (25MG (TEN TABLETS) TO BE TAKEN ONCE WEEKLY ON A..)
     Route: 065
     Dates: start: 20250908
  64. METHOTREXATE [Concomitant]
     Active Substance: METHOTREXATE
     Dosage: 25 MILLIGRAM, QW (25MG (TEN TABLETS) TO BE TAKEN ONCE WEEKLY ON A..)
     Dates: start: 20250908

REACTIONS (1)
  - Skin ulcer [Recovering/Resolving]

NARRATIVE: CASE EVENT DATE: 20250220
